FAERS Safety Report 5804644-1 (Version None)
Quarter: 2008Q3

REPORT INFORMATION
  Report Type: 
  Country: None (occurrence: None)
  Receive Date: 20080709
  Receipt Date: 20080626
  Transmission Date: 20090109
  Serious: Yes (Hospitalization)
  Sender: FDA-Public Use
  Company Number: ES-ELI_LILLY_AND_COMPANY-ES200806006365

PATIENT
  Age: 83 Year
  Sex: Female

DRUGS (8)
  1. FORTEO [Suspect]
     Indication: OSTEOPOROSIS
     Dosage: 20 UG, UNK
     Route: 058
     Dates: start: 20080301, end: 20080613
  2. FORTEO [Suspect]
     Dosage: 20 UG, UNK
     Route: 058
     Dates: start: 20080620
  3. INSULIN [Concomitant]
     Indication: DIABETES MELLITUS
     Dosage: UNK, UNK
  4. ENALAPRIL MALEATE [Concomitant]
     Indication: HYPERTENSION
     Dosage: UNK, UNK
  5. OMEPRAZOLE [Concomitant]
     Indication: PROPHYLAXIS
     Dosage: UNK, UNK
  6. CYMBALTA [Concomitant]
     Indication: DEPRESSION
     Dosage: UNK, UNK
  7. MIRTAZAPINE [Concomitant]
     Dosage: UNK, UNK
  8. MANNITOL [Concomitant]
     Dosage: UNK, UNK

REACTIONS (3)
  - DEMENTIA [None]
  - HALLUCINATION [None]
  - SOMNOLENCE [None]
